FAERS Safety Report 22896919 (Version 3)
Quarter: 2023Q4

REPORT INFORMATION
  Report Type: Report from Study
  Country: US (occurrence: US)
  Receive Date: 20230902
  Receipt Date: 20231215
  Transmission Date: 20240110
  Serious: Yes (Other)
  Sender: FDA-Public Use
  Company Number: US-002147023-NVSC2023US189788

PATIENT
  Age: 31 Year
  Sex: Female

DRUGS (4)
  1. KESIMPTA [Suspect]
     Active Substance: OFATUMUMAB
     Indication: Multiple sclerosis
     Dosage: UNK (FIRST INJECTION)
     Route: 065
     Dates: start: 202308
  2. KESIMPTA [Suspect]
     Active Substance: OFATUMUMAB
     Dosage: UNK (SECOND INJECTION)
     Route: 065
  3. KESIMPTA [Suspect]
     Active Substance: OFATUMUMAB
     Dosage: UNK UNK, QMO
     Route: 065
  4. KESIMPTA [Suspect]
     Active Substance: OFATUMUMAB
     Dosage: UNK
     Route: 065
     Dates: start: 20230801

REACTIONS (18)
  - Multiple sclerosis relapse [Unknown]
  - Ear discomfort [Recovering/Resolving]
  - Paraesthesia [Recovering/Resolving]
  - Fatigue [Recovering/Resolving]
  - Mood swings [Unknown]
  - Amnesia [Unknown]
  - Photophobia [Unknown]
  - Pain [Unknown]
  - Eye pain [Unknown]
  - Neck pain [Unknown]
  - Anxiety [Unknown]
  - Panic reaction [Recovering/Resolving]
  - Headache [Unknown]
  - Influenza like illness [Unknown]
  - Migraine [Unknown]
  - Arthralgia [Unknown]
  - Back pain [Unknown]
  - Influenza [Recovering/Resolving]

NARRATIVE: CASE EVENT DATE: 20230901
